FAERS Safety Report 4797420-2 (Version None)
Quarter: 2005Q4

REPORT INFORMATION
  Report Type: 
  Country: None (occurrence: None)
  Receive Date: 20051013
  Receipt Date: 20051003
  Transmission Date: 20060501
  Serious: Yes (Hospitalization)
  Sender: FDA-Public Use
  Company Number: US-KINGPHARMUSA00001-K200501296

PATIENT
  Age: 62 Year
  Sex: Male

DRUGS (1)
  1. ALTACE [Suspect]
     Route: 048
     Dates: end: 20050801

REACTIONS (4)
  - DEHYDRATION [None]
  - GASTROINTESTINAL DISORDER [None]
  - OLIGURIA [None]
  - RENAL FAILURE ACUTE [None]
